FAERS Safety Report 9710614 (Version 1)
Quarter: 2013Q4

REPORT INFORMATION
  Report Type: Spontaneous
  Country: US (occurrence: US)
  Receive Date: 20131126
  Receipt Date: 20131126
  Transmission Date: 20140711
  Serious: No
  Sender: FDA-Public Use
  Company Number: US-BRISTOL-MYERS SQUIBB COMPANY-18990069

PATIENT
  Age: 46 Year
  Sex: Female
  Weight: 96.14 kg

DRUGS (10)
  1. BYDUREON 2MG SUSPENSION [Suspect]
     Indication: TYPE 2 DIABETES MELLITUS
     Route: 058
     Dates: start: 201301, end: 201304
  2. RESTORIL [Concomitant]
  3. LISINOPRIL [Concomitant]
  4. PRILOSEC [Concomitant]
  5. HCTZ [Concomitant]
  6. CLARITIN [Concomitant]
  7. TOPAMAX [Concomitant]
  8. NEURONTIN [Concomitant]
  9. METFORMIN [Concomitant]
  10. LORTAB [Concomitant]

REACTIONS (1)
  - Injection site nodule [Unknown]
